FAERS Safety Report 11945741 (Version 1)
Quarter: 2016Q1

REPORT INFORMATION
  Report Type: Spontaneous
  Country: US (occurrence: US)
  Receive Date: 20160125
  Receipt Date: 20160125
  Transmission Date: 20160526
  Serious: No
  Sender: FDA-Public Use
  Company Number: US-JNJFOC-20151209173

PATIENT
  Age: 60 Year
  Sex: Male
  Weight: 92.99 kg

DRUGS (2)
  1. MENS ROGAINE EXTRA STRENGTH [Suspect]
     Active Substance: MINOXIDIL
     Route: 061
  2. MENS ROGAINE EXTRA STRENGTH [Suspect]
     Active Substance: MINOXIDIL
     Indication: HAIR DISORDER
     Dosage: 2 TIMES A DAY, THEN ONCE A DAY, EARLY OCTOBER
     Route: 061

REACTIONS (6)
  - Off label use [Recovering/Resolving]
  - Drug ineffective for unapproved indication [Unknown]
  - Chest pain [Recovering/Resolving]
  - Product use issue [Recovering/Resolving]
  - Hyperhidrosis [Recovering/Resolving]
  - Inappropriate schedule of drug administration [Recovering/Resolving]

NARRATIVE: CASE EVENT DATE: 201510
